FAERS Safety Report 19060013 (Version 1)
Quarter: 2021Q1

REPORT INFORMATION
  Report Type: Spontaneous
  Country: NL (occurrence: NL)
  Receive Date: 20210326
  Receipt Date: 20210326
  Transmission Date: 20210420
  Serious: Yes (Other)
  Sender: FDA-Public Use
  Company Number: NL-TEVA-2021-NL-1893423

PATIENT
  Sex: Male

DRUGS (6)
  1. COLECALCIFEROL CAPSULE   5600IE / BRAND NAME NOT SPECIFIED [Concomitant]
     Active Substance: CHOLECALCIFEROL
     Dosage: 5600 UNITS:THERAPY START DATE:ASKED BUT UNKNOWN:THERAPY END DATE :ASKED BUT UNKNOWN
  2. PRAVASTATINE TABLET 40MG / BRAND NAME NOT SPECIFIED [Concomitant]
     Active Substance: PRAVASTATIN
     Dosage: 40 MG (MILLIGRAM)THERAPY START DATE:ASKED BUT UNKNOWN:THERAPY END DATE :ASKED BUT UNKNOWN
  3. LAMOTRIGINE DISPERTABLET 25MG / BRAND NAME NOT SPECIFIED [Suspect]
     Active Substance: LAMOTRIGINE
     Indication: MOOD SWINGS
     Dosage: TABL 25 MG ONCE DAILY AND THE LAST WEEK TABL 50 MG ONCE DAILY:UNIT DOSE:25MILLIGRAM
     Dates: start: 20210212, end: 20210301
  4. RISPERIDON / BRAND NAME NOT SPECIFIED [Suspect]
     Active Substance: RISPERIDONE
     Dosage: TABL 2X2 MG (NEXT TO CBZ) AND 2 + 1 MG (NEXT TO LTG):THERAPY START DATE:ASKED BUT UNKNOWN:THERAPY EN
  5. FOLIUMZUUR TABLET 0,5MG / BRAND NAME NOT SPECIFIED [Concomitant]
     Active Substance: FOLIC ACID
     Dosage: 0,5 MG (MILLIGRAM):THERAPY START DATE:ASKED BUT UNKNOWN:THERAPY END DATE :ASKED BUT UNKNOWN
  6. PAROXETINE TABLET 30MG / BRAND NAME NOT SPECIFIED [Concomitant]
     Active Substance: PAROXETINE
     Dosage: 30 MG (MILLIGRAM):THERAPY START DATE:ASKED BUT UNKNOWN:THERAPY END DATE :ASKED BUT UNKNOWN

REACTIONS (2)
  - Hyponatraemia [Unknown]
  - Inappropriate antidiuretic hormone secretion [Unknown]
